FAERS Safety Report 18543316 (Version 4)
Quarter: 2024Q4

REPORT INFORMATION
  Report Type: Report from Study
  Country: IT (occurrence: IT)
  Receive Date: 20201125
  Receipt Date: 20241126
  Transmission Date: 20250114
  Serious: Yes (Hospitalization)
  Sender: JOHNSON AND JOHNSON
  Company Number: None

PATIENT
  Age: 93 Year
  Sex: Male

DRUGS (14)
  1. RIVAROXABAN [Suspect]
     Active Substance: RIVAROXABAN
     Indication: Drug abuse
     Dosage: 45 MG
     Route: 048
     Dates: start: 20200707, end: 20200707
  2. RIVAROXABAN [Suspect]
     Active Substance: RIVAROXABAN
     Indication: Product used for unknown indication
  3. DUTASTERIDE [Suspect]
     Active Substance: DUTASTERIDE
     Indication: Drug abuse
     Dosage: UNK
  4. DUTASTERIDE [Suspect]
     Active Substance: DUTASTERIDE
     Dosage: 7.5 MG, QD
     Dates: start: 20200707, end: 20200707
  5. OXYBUTYNIN CHLORIDE [Suspect]
     Active Substance: OXYBUTYNIN CHLORIDE
     Indication: Drug abuse
     Dosage: 45 MG
  6. OXYBUTYNIN CHLORIDE [Suspect]
     Active Substance: OXYBUTYNIN CHLORIDE
     Dosage: 45 MG
     Route: 048
     Dates: start: 20200707, end: 20200707
  7. ALFUZOSIN HYDROCHLORIDE [Suspect]
     Active Substance: ALFUZOSIN HYDROCHLORIDE
     Indication: Drug abuse
  8. ALFUZOSIN HYDROCHLORIDE [Suspect]
     Active Substance: ALFUZOSIN HYDROCHLORIDE
     Dosage: 60 MG
     Route: 048
     Dates: start: 20200707, end: 20200707
  9. PANTOPRAZOLE [Suspect]
     Active Substance: PANTOPRAZOLE
     Indication: Drug abuse
     Dosage: UNK
  10. PANTOPRAZOLE [Suspect]
     Active Substance: PANTOPRAZOLE
     Dosage: 2 DF, QD
     Dates: start: 20200707, end: 20200707
  11. LASIX [Suspect]
     Active Substance: FUROSEMIDE
     Indication: Product used for unknown indication
     Dosage: 50 MG, QD
     Dates: start: 20200707, end: 20200707
  12. LEUCOVORIN CALCIUM [Suspect]
     Active Substance: LEUCOVORIN CALCIUM
     Indication: Product used for unknown indication
     Dosage: 45 MG, QD
     Dates: start: 20200707, end: 20200707
  13. SULPIRIDE [Suspect]
     Active Substance: SULPIRIDE
     Indication: Product used for unknown indication
     Dosage: 50 MG, QD
     Dates: start: 20200707, end: 20200707
  14. OXYBUTYNIN CHLORIDE [Suspect]
     Active Substance: OXYBUTYNIN CHLORIDE
     Indication: Drug abuse
     Dosage: 45 MG
     Dates: start: 20200707, end: 20200707

REACTIONS (3)
  - Disorganised speech [Not Recovered/Not Resolved]
  - Drug abuse [Not Recovered/Not Resolved]
  - Intentional overdose [Unknown]

NARRATIVE: CASE EVENT DATE: 20200707
